FAERS Safety Report 25337900 (Version 1)
Quarter: 2025Q2

REPORT INFORMATION
  Report Type: Spontaneous
  Country: US (occurrence: US)
  Receive Date: 20250520
  Receipt Date: 20250520
  Transmission Date: 20250716
  Serious: No
  Sender: MISSION PHARMACAL COMPANY
  Company Number: US-Mission Pharmacal Company-2177099

PATIENT
  Age: 26 Year
  Sex: Male

DRUGS (1)
  1. THIOLA EC [Suspect]
     Active Substance: TIOPRONIN
     Indication: Cystinuria
     Dates: start: 20250423

REACTIONS (5)
  - Pyrexia [Unknown]
  - Product dose omission issue [Unknown]
  - Paraesthesia [Unknown]
  - Eye irritation [Unknown]
  - Myalgia [Unknown]
